FAERS Safety Report 11471573 (Version 2)
Quarter: 2015Q3

REPORT INFORMATION
  Report Type: Spontaneous
  Country: US (occurrence: US)
  Receive Date: 20150903
  Receipt Date: 20150903
  Transmission Date: 20151125
  Serious: No
  Sender: FDA-Public Use
  Company Number: US-ELI_LILLY_AND_COMPANY-US201203002232

PATIENT
  Age: 25 Year
  Sex: Female

DRUGS (2)
  1. CYMBALTA [Suspect]
     Active Substance: DULOXETINE HYDROCHLORIDE
     Indication: BIPOLAR DISORDER
     Dosage: 60 MG, QD
     Dates: start: 201003
  2. XANAX [Concomitant]
     Active Substance: ALPRAZOLAM
     Indication: ANXIETY

REACTIONS (6)
  - Dizziness [Unknown]
  - Palpitations [Unknown]
  - Drug withdrawal syndrome [Unknown]
  - Depressed mood [Unknown]
  - Feeling abnormal [Unknown]
  - Off label use [Not Recovered/Not Resolved]
